FAERS Safety Report 24417060 (Version 2)
Quarter: 2024Q4

REPORT INFORMATION
  Report Type: Spontaneous
  Country: US (occurrence: US)
  Receive Date: 20241009
  Receipt Date: 20241015
  Transmission Date: 20250114
  Serious: Yes (Hospitalization)
  Sender: SANOFI AVENTIS
  Company Number: US-SA-2023SA352484

PATIENT
  Sex: Female

DRUGS (3)
  1. DUPIXENT [Suspect]
     Active Substance: DUPILUMAB
     Indication: Eczema
     Dosage: 2 DF, 1X
     Route: 058
     Dates: start: 20231023, end: 20231023
  2. DUPIXENT [Suspect]
     Active Substance: DUPILUMAB
     Indication: Asthma
     Dosage: 300 MG, QOW
     Route: 058
     Dates: start: 20231106
  3. DUPIXENT [Suspect]
     Active Substance: DUPILUMAB
     Dosage: UNK

REACTIONS (5)
  - Chronic obstructive pulmonary disease [Unknown]
  - Respiration abnormal [Unknown]
  - Bronchitis [Unknown]
  - Illness [Unknown]
  - Therapeutic response decreased [Unknown]
